FAERS Safety Report 8548225-8 (Version None)
Quarter: 2012Q3

REPORT INFORMATION
  Report Type: 
  Country: None (occurrence: None)
  Receive Date: 20120730
  Receipt Date: 20120717
  Transmission Date: 20120928
  Serious: Yes (Hospitalization)
  Sender: FDA-Public Use
  Company Number: GB-AMGEN-GBRCT2012045669

PATIENT
  Age: 37 Year
  Sex: Male
  Weight: 77 kg

DRUGS (2)
  1. PROPRANOLOL [Concomitant]
     Dosage: UNK
     Dates: start: 20110109
  2. ETANERCEPT [Suspect]
     Indication: PRODUCT USED FOR UNKNOWN INDICATION
     Dosage: 50 MG, WEEKLY
     Dates: start: 20101215, end: 20120412

REACTIONS (1)
  - PSORIASIS [None]
